FAERS Safety Report 6955070-3 (Version None)
Quarter: 2010Q3

REPORT INFORMATION
  Report Type: 
  Country: None (occurrence: None)
  Receive Date: 20100825
  Receipt Date: 20100812
  Transmission Date: 20110219
  Serious: Yes (Hospitalization)
  Sender: FDA-Public Use
  Company Number: JPI-P-011883

PATIENT
  Sex: Female

DRUGS (1)
  1. XYREM [Suspect]
     Indication: PRODUCT USED FOR UNKNOWN INDICATION
     Dosage: (1.5-3GM TWICE A DAY), ORAL, 12 GM (4 GM,3 IN 1 D) ,ORAL
     Route: 048
     Dates: start: 20050411

REACTIONS (1)
  - LIVER DISORDER [None]
